FAERS Safety Report 16864585 (Version 1)
Quarter: 2019Q3

REPORT INFORMATION
  Report Type: Spontaneous
  Country: JP (occurrence: JP)
  Receive Date: 20190928
  Receipt Date: 20190928
  Transmission Date: 20191005
  Serious: Yes (Hospitalization)
  Sender: FDA-Public Use
  Company Number: PHJP2019JP010063

PATIENT
  Age: 63 Year
  Sex: Female

DRUGS (4)
  1. SELEGILINE HYDROCHLORIDE. [Suspect]
     Active Substance: SELEGILINE HYDROCHLORIDE
     Indication: PARKINSON^S DISEASE
     Dosage: UNK
     Route: 062
  2. LEVODOPA BENSERAZIDE HYDROCHLO [Suspect]
     Active Substance: BENSERAZIDE HYDROCHLORIDE\LEVODOPA
     Indication: PARKINSON^S DISEASE
     Dosage: UNK
     Route: 048
  3. COMTAN [Suspect]
     Active Substance: ENTACAPONE
     Indication: PARKINSON^S DISEASE
     Dosage: UNK
     Route: 048
  4. ROTIGOTINE [Suspect]
     Active Substance: ROTIGOTINE
     Indication: PARKINSON^S DISEASE
     Dosage: UNK
     Route: 062

REACTIONS (4)
  - White blood cell analysis abnormal [Unknown]
  - Acute lymphocytic leukaemia [Unknown]
  - White blood cell count increased [Unknown]
  - White blood cell morphology abnormal [Unknown]

NARRATIVE: CASE EVENT DATE: 20190730
